FAERS Safety Report 6350552 (Version 29)
Quarter: 2013Q3

REPORT INFORMATION
  Report Type: Spontaneous
  Country: US (occurrence: US)
  Receive Date: 20070706
  Receipt Date: 20130806
  Transmission Date: 20140515
  Serious: Yes (Other)
  Sender: FDA-Public Use
  Company Number: PHEH2007US09433

PATIENT
  Age: 33 Year
  Sex: Female
  Weight: 66.53 kg

DRUGS (9)
  1. ZOMETA [Suspect]
     Indication: METASTASES TO BONE
     Dosage: 4 MG, QMO
     Route: 042
     Dates: start: 20060907, end: 20070518
  2. ZOMETA [Suspect]
     Indication: BREAST CANCER
     Dosage: 4 MG, Q2MO
     Route: 042
     Dates: start: 20071128, end: 20080611
  3. ANASTROZOLE [Concomitant]
     Dosage: 1 MG, QD
  4. AVASTIN [Concomitant]
  5. TAXOL [Concomitant]
  6. PERCOCET [Concomitant]
  7. AMBIEN [Concomitant]
     Dosage: 10 MG, QHS
  8. CLEOCIN [Concomitant]
     Dosage: 300 MG, QID
  9. TAMOXIFEN [Concomitant]

REACTIONS (97)
  - Osteonecrosis of jaw [Recovered/Resolved]
  - Pain in jaw [Unknown]
  - Lymphoedema [Unknown]
  - Depression [Unknown]
  - Asthma [Unknown]
  - Intervertebral disc protrusion [Unknown]
  - Impaired healing [Unknown]
  - Osteosclerosis [Unknown]
  - Oral disorder [Unknown]
  - Dental caries [Unknown]
  - Tooth deposit [Unknown]
  - Gingivitis [Unknown]
  - Tooth fracture [Unknown]
  - Dental plaque [Unknown]
  - Influenza [Unknown]
  - Hyperlipidaemia [Unknown]
  - Haematemesis [Unknown]
  - Intervertebral disc degeneration [Unknown]
  - Osteopenia [Unknown]
  - Gingival bleeding [Unknown]
  - Bone lesion [Not Recovered/Not Resolved]
  - Exposed bone in jaw [Recovering/Resolving]
  - Fracture [Unknown]
  - Suicidal ideation [Unknown]
  - Osteomyelitis acute [Recovering/Resolving]
  - Tooth abscess [Unknown]
  - Metastases to bone [Unknown]
  - Malignant neoplasm progression [Unknown]
  - Breast cancer metastatic [Unknown]
  - Metastases to spine [Unknown]
  - Haemangioma of bone [Unknown]
  - Hypertension [Unknown]
  - Upper respiratory tract infection [Unknown]
  - Primary sequestrum [Recovering/Resolving]
  - Splenomegaly [Unknown]
  - Sensory loss [Unknown]
  - Lymphadenopathy [Unknown]
  - Oral discomfort [Unknown]
  - Anaemia [Unknown]
  - Polyneuropathy [Unknown]
  - Fall [Unknown]
  - Abdominal wound dehiscence [Unknown]
  - Pulmonary mass [Unknown]
  - Eyelid ptosis [Unknown]
  - Atelectasis [Unknown]
  - Chronic fatigue syndrome [Unknown]
  - Insomnia [Unknown]
  - Malaise [Unknown]
  - Paraesthesia [Recovered/Resolved]
  - Back pain [Unknown]
  - Neck pain [Unknown]
  - Musculoskeletal pain [Unknown]
  - Injury [Unknown]
  - Oesophagitis [Unknown]
  - Hot flush [Unknown]
  - Pharyngitis [Unknown]
  - Oropharyngeal pain [Unknown]
  - Dyspnoea [Unknown]
  - Diverticulum intestinal [Unknown]
  - Vaginal haemorrhage [Unknown]
  - Cognitive disorder [Unknown]
  - Neuralgia [Unknown]
  - Acute sinusitis [Unknown]
  - Rhinitis [Unknown]
  - Hypoaesthesia [Unknown]
  - Loose tooth [Unknown]
  - Vision blurred [Unknown]
  - Anxiety [Unknown]
  - Migraine [Unknown]
  - Dysphagia [Unknown]
  - Calculus ureteric [Unknown]
  - Hydroureter [Unknown]
  - Inguinal hernia [Unknown]
  - Pleural effusion [Unknown]
  - Exostosis of jaw [Unknown]
  - Contusion [Unknown]
  - Wound [Unknown]
  - Cough [Unknown]
  - Nausea [Unknown]
  - Wound secretion [Unknown]
  - Pain [Unknown]
  - Asthenia [Unknown]
  - Tenderness [Unknown]
  - Wound infection [Unknown]
  - Abdominal pain [Unknown]
  - Spinal pain [Unknown]
  - Diarrhoea [Unknown]
  - Arthralgia [Unknown]
  - Bone pain [Unknown]
  - Gastritis [Unknown]
  - Agitated depression [Unknown]
  - Urinary incontinence [Unknown]
  - Hypotension [Unknown]
  - Hypercalcaemia [Recovering/Resolving]
  - Renal failure acute [Unknown]
  - Gastroenteritis [Unknown]
  - Dehydration [Unknown]
